FAERS Safety Report 4523137-5 (Version None)
Quarter: 2004Q4

REPORT INFORMATION
  Report Type: 
  Country: None (occurrence: None)
  Receive Date: 20041207
  Receipt Date: 20041207
  Transmission Date: 20050328
  Serious: Yes (Hospitalization)
  Sender: FDA-Public Use
  Company Number: None

PATIENT
  Age: 59 Year
  Sex: Male

DRUGS (3)
  1. GEMCITABINE [Suspect]
     Indication: PANCREATIC CARCINOMA
     Dosage: 650 MG/M2/QWK/IV
     Route: 042
     Dates: start: 20040804, end: 20041110
  2. CELEBREX [Suspect]
     Indication: PANCREATIC CARCINOMA
     Dosage: 400 MG BID / PO
     Route: 048
     Dates: start: 20040804, end: 20041110
  3. ARANESP [Concomitant]

REACTIONS (1)
  - ANAEMIA [None]
